FAERS Safety Report 6508554-6 (Version None)
Quarter: 2009Q4

REPORT INFORMATION
  Report Type: 
  Country: None (occurrence: None)
  Receive Date: 20091221
  Receipt Date: 20091206
  Transmission Date: 20100525
  Serious: Yes (Other)
  Sender: FDA-Public Use
  Company Number: DE-PFIZER INC-2009306654

PATIENT
  Sex: Female

DRUGS (9)
  1. CHANTIX [Suspect]
     Indication: TOBACCO ABUSE
     Dosage: 2 MG, UNK
     Route: 048
     Dates: start: 20091108, end: 20091123
  2. RIVAROXABAN [Suspect]
     Indication: PULMONARY EMBOLISM
     Dosage: 30 MG, UNK
     Route: 048
     Dates: start: 20091103
  3. ALEVE (CAPLET) [Suspect]
     Indication: NECK PAIN
     Dosage: 500 MG, UNK
     Route: 048
     Dates: start: 20091101, end: 20091123
  4. ENOXAPARIN [Concomitant]
     Dosage: 1.5 MG/KG, UNK
     Route: 058
  5. MULTI-VITAMINS [Concomitant]
     Indication: DEPRESSION
     Dosage: 1 DF, UNK
     Route: 048
     Dates: start: 20090101
  6. ZOLOFT [Concomitant]
     Indication: DEPRESSION
     Dosage: 150 MG, UNK
     Route: 048
     Dates: start: 20090101
  7. SEROQUEL [Concomitant]
     Indication: DEPRESSION
     Dosage: 200 MG, UNK
     Route: 048
     Dates: start: 20090101
  8. DESYREL [Concomitant]
     Indication: DEPRESSION
     Dosage: 75 MG, UNK
     Route: 048
     Dates: start: 20090101
  9. CATAPRES [Concomitant]
     Indication: DEPRESSION
     Dosage: 2 MG, UNK
     Route: 048
     Dates: start: 20090101

REACTIONS (1)
  - ALANINE AMINOTRANSFERASE INCREASED [None]
